FAERS Safety Report 11335370 (Version 6)
Quarter: 2015Q4

REPORT INFORMATION
  Report Type: Spontaneous
  Country: JP (occurrence: JP)
  Receive Date: 20150804
  Receipt Date: 20151103
  Transmission Date: 20160304
  Serious: Yes (Death, Hospitalization, Other)
  Sender: FDA-Public Use
  Company Number: JP-SA-2015SA113799

PATIENT
  Age: 76 Year
  Sex: Male
  Weight: 68.5 kg

DRUGS (3)
  1. G-LASTA [Suspect]
     Active Substance: PEGFILGRASTIM
     Indication: PROPHYLAXIS
     Route: 058
     Dates: start: 20150729, end: 20150729
  2. JEVTANA [Suspect]
     Active Substance: CABAZITAXEL
     Indication: HORMONE-REFRACTORY PROSTATE CANCER
     Route: 042
     Dates: start: 20150727, end: 20150727
  3. DECADRON [Concomitant]
     Active Substance: DEXAMETHASONE

REACTIONS (6)
  - Myocardial infarction [Recovered/Resolved]
  - Febrile neutropenia [Recovering/Resolving]
  - Pyrexia [Recovering/Resolving]
  - Vomiting [Not Recovered/Not Resolved]
  - Rhabdomyolysis [Recovered/Resolved]
  - Diarrhoea [Recovered/Resolved]

NARRATIVE: CASE EVENT DATE: 20150728
